FAERS Safety Report 8729516 (Version 2)
Quarter: 2012Q4

REPORT INFORMATION
  Report Type: 
  Country: US (occurrence: US)
  Receive Date: 20120817
  Receipt Date: 20120907
  Transmission Date: 20130627
  Serious: Yes (Death)
  Sender: FDA-Public Use
  Company Number: US-UCBSA-063582

PATIENT
  Age: 56 Year
  Sex: Female

DRUGS (9)
  1. NEUPRO [Suspect]
     Indication: PARKINSON^S DISEASE
     Route: 062
     Dates: start: 20120801, end: 20120803
  2. NEUPRO [Suspect]
     Indication: PARKINSON^S DISEASE
     Route: 062
     Dates: start: 20120725, end: 2012
  3. VENLAFAXINE [Concomitant]
     Indication: DEPRESSION
     Dosage: EXTENDED RELEASE
     Route: 048
  4. VENLAFAXINE [Concomitant]
     Indication: ANXIETY
     Dosage: EXTENDED RELEASE
     Route: 048
  5. TROSPIUM [Concomitant]
     Indication: URINARY TRACT DISORDER
     Dosage: BEFORE MEALS
     Dates: start: 20120801
  6. SOLIFENACIN [Concomitant]
     Indication: URINARY TRACT DISORDER
     Dosage: ONE AT 7 AM AND ONE AT 10 PM
  7. CARBIDOPA LEVODOPA [Concomitant]
     Dosage: 50/200 MG,CONTINUOUS RELEASE, ONE AT 1 AM, 10 AM,1 PM,4 PM, 7 PM AND 10 PM
  8. CARBIDOPA LEVODOPA [Concomitant]
     Dosage: 25/100 MG, ONE AT 7 AM AND 1 PM AND ONE AS NEEDED
  9. RASAGILINE [Concomitant]
     Route: 048

REACTIONS (1)
  - Death [Fatal]
